FAERS Safety Report 6458818-X (Version None)
Quarter: 2009Q4

REPORT INFORMATION
  Report Type: 
  Country: None (occurrence: None)
  Receive Date: 20091127
  Receipt Date: 20091125
  Transmission Date: 20100525
  Serious: Yes (Other)
  Sender: FDA-Public Use
  Company Number: AU-ROCHE-670929

PATIENT
  Sex: Male

DRUGS (1)
  1. XELODA [Suspect]
     Dosage: PATIENT HAD RECEIVED 5 COURSES OF THERAPY
     Route: 065

REACTIONS (2)
  - GASTRIC CANCER [None]
  - MALIGNANT NEOPLASM PROGRESSION [None]
